FAERS Safety Report 6340490-0 (Version None)
Quarter: 2009Q3

REPORT INFORMATION
  Report Type: 
  Country: None (occurrence: None)
  Receive Date: 20090904
  Receipt Date: 20090825
  Transmission Date: 20100115
  Serious: Yes (Hospitalization)
  Sender: FDA-Public Use
  Company Number: DE-JNJFOC-20090602087

PATIENT
  Age: 70 Year
  Sex: Female

DRUGS (6)
  1. DOXORUBICIN HCL [Suspect]
     Route: 042
  2. DOXORUBICIN HCL [Suspect]
     Dosage: MOST RECENT CYCLE
     Route: 042
  3. DOXORUBICIN HCL [Suspect]
     Indication: MUELLER'S MIXED TUMOUR
     Dosage: CYCLE 1
     Route: 042
  4. CARBOPLATIN [Suspect]
     Route: 042
  5. CARBOPLATIN [Suspect]
     Dosage: MOST RECENT CYCLE
     Route: 042
  6. CARBOPLATIN [Suspect]
     Indication: MUELLER'S MIXED TUMOUR
     Route: 042

REACTIONS (2)
  - PELVIC ABSCESS [None]
  - URINARY RETENTION [None]
